FAERS Safety Report 6979939-9 (Version None)
Quarter: 2010Q3

REPORT INFORMATION
  Report Type: 
  Country: None (occurrence: None)
  Receive Date: 20100909
  Receipt Date: 20100901
  Transmission Date: 20110219
  Serious: Yes (Death)
  Sender: FDA-Public Use
  Company Number: 2010JP005196

PATIENT
  Age: 30 Year
  Sex: Male

DRUGS (3)
  1. PROGRAF [Suspect]
     Indication: RENAL TRANSPLANT
     Dosage: 1.5 MG, ORAL
     Route: 048
  2. MYCOPHENOLATE MOFETIL [Concomitant]
  3. METHYLPREDNISOLON (METHYLPREDNISOLONE) PER ORAL NOS [Concomitant]

REACTIONS (9)
  - ANAEMIA [None]
  - BLOOD LACTATE DEHYDROGENASE INCREASED [None]
  - GENERAL PHYSICAL HEALTH DETERIORATION [None]
  - HAEMOTHORAX [None]
  - METASTASES TO ADRENALS [None]
  - METASTASES TO LIVER [None]
  - METASTASES TO LYMPH NODES [None]
  - PLEURAL EFFUSION [None]
  - RHABDOID TUMOUR OF THE KIDNEY [None]
